FAERS Safety Report 18000344 (Version 1)
Quarter: 2020Q3

REPORT INFORMATION
  Report Type: Spontaneous
  Country: CA (occurrence: CA)
  Receive Date: 20200709
  Receipt Date: 20200709
  Transmission Date: 20201103
  Serious: Yes (Life-Threatening, Disabling, Other)
  Sender: FDA-Public Use
  Company Number: CA-009507513-2007CAN001975

PATIENT
  Age: 69 Year
  Sex: Female

DRUGS (2)
  1. TEMODAL [Suspect]
     Active Substance: TEMOZOLOMIDE
     Indication: GLIOBLASTOMA MULTIFORME
     Dosage: 6 COURSES, MONTHLY
     Route: 048
  2. AVELUMAB [Suspect]
     Active Substance: AVELUMAB
     Indication: GLIOBLASTOMA MULTIFORME
     Dosage: 10MG/KG, EVERY (Q) 2WEEKS FOR THE PAST 46 WEEKS
     Route: 042

REACTIONS (1)
  - Glioblastoma multiforme [Unknown]
